FAERS Safety Report 16594808 (Version 2)
Quarter: 2019Q3

REPORT INFORMATION
  Report Type: Spontaneous
  Country: US (occurrence: US)
  Receive Date: 20190718
  Receipt Date: 20190821
  Transmission Date: 20191004
  Serious: Yes (Hospitalization)
  Sender: FDA-Public Use
  Company Number: US-NOVOPROD-673437

PATIENT
  Age: 65 Year
  Sex: Female

DRUGS (1)
  1. NOVOLOG MIX 70/30 [Suspect]
     Active Substance: INSULIN ASPART
     Indication: DIABETES MELLITUS
     Dosage: 25 IU
     Route: 058
     Dates: start: 1999

REACTIONS (12)
  - Dizziness [Not Recovered/Not Resolved]
  - Joint injury [Unknown]
  - Weight decreased [Not Recovered/Not Resolved]
  - Viral infection [Unknown]
  - Impaired gastric emptying [Not Recovered/Not Resolved]
  - Pain [Unknown]
  - Visual impairment [Not Recovered/Not Resolved]
  - Balance disorder [Unknown]
  - Diarrhoea [Unknown]
  - Pain [Unknown]
  - Fall [Unknown]
  - Head injury [Unknown]

NARRATIVE: CASE EVENT DATE: 2015
